FAERS Safety Report 9775376 (Version 1)
Quarter: 2013Q4

REPORT INFORMATION
  Report Type: Spontaneous
  Country: US (occurrence: US)
  Receive Date: 20131220
  Receipt Date: 20131220
  Transmission Date: 20140711
  Serious: No
  Sender: FDA-Public Use
  Company Number: US-GALDERMA-US13003325

PATIENT
  Age: 48 Year
  Sex: Male

DRUGS (2)
  1. MIRVASO (BRIMONIDINE) TOPICAL GEL, 0.33% [Suspect]
     Indication: ROSACEA
     Dosage: 0.33%
     Route: 061
     Dates: start: 20131010, end: 20131018
  2. METROCREAM (METRONIDAZOLE) TOPICAL CREAM, 0.75% [Concomitant]
     Indication: ROSACEA
     Dosage: 0.75%
     Route: 061

REACTIONS (1)
  - Condition aggravated [Recovered/Resolved]
